FAERS Safety Report 15849732 (Version 4)
Quarter: 2019Q2

REPORT INFORMATION
  Report Type: Report from Study
  Country: US (occurrence: US)
  Receive Date: 20190121
  Receipt Date: 20190508
  Transmission Date: 20190711
  Serious: Yes (Hospitalization)
  Sender: FDA-Public Use
  Company Number: US-BAUSCH-BL-2019-001694

PATIENT
  Age: 69 Year
  Sex: Female
  Weight: 50.85 kg

DRUGS (4)
  1. XIFAXAN [Suspect]
     Active Substance: RIFAXIMIN
     Indication: HEPATIC ENCEPHALOPATHY
     Dosage: 2 OR 3 YEARS AGO
     Route: 048
     Dates: start: 2016
  2. XIFAXAN [Suspect]
     Active Substance: RIFAXIMIN
     Dosage: STARTED WHILE IN THE HOSPITAL
     Route: 048
     Dates: start: 201904
  3. LACTULOSE. [Concomitant]
     Active Substance: LACTULOSE
     Indication: PRODUCT USED FOR UNKNOWN INDICATION
  4. XIFAXAN [Suspect]
     Active Substance: RIFAXIMIN
     Dosage: REDUCED THE DOSE
     Route: 048
     Dates: end: 20190112

REACTIONS (10)
  - Insurance issue [Unknown]
  - Blood count abnormal [Unknown]
  - Fall [Unknown]
  - Intentional product use issue [Unknown]
  - Injury [Unknown]
  - Mental status changes [Unknown]
  - Therapy cessation [Unknown]
  - Ammonia increased [Recovering/Resolving]
  - Head injury [Unknown]
  - Confusional state [Recovering/Resolving]

NARRATIVE: CASE EVENT DATE: 2019
